FAERS Safety Report 7448328-5 (Version None)
Quarter: 2011Q2

REPORT INFORMATION
  Report Type: 
  Country: None (occurrence: None)
  Receive Date: 20110429
  Receipt Date: 20110415
  Transmission Date: 20111010
  Serious: No
  Sender: FDA-Public Use
  Company Number: US-ASTRAZENECA-2011SE04076

PATIENT
  Sex: Female

DRUGS (8)
  1. ZOLPIDEM [Concomitant]
     Route: 048
  2. ASPIRIN [Concomitant]
     Route: 048
  3. NEXIUM [Suspect]
     Route: 048
  4. NORVASC [Concomitant]
     Route: 048
  5. VICODIN [Concomitant]
     Dosage: 500MG 5MG 1/2 TABLET EVERY FOUR HOURS PRN LAST DOSE 100
  6. LIPITOR [Concomitant]
     Route: 048
  7. DIGOXIN [Concomitant]
     Route: 048
  8. HYDROCHLOROTHIAZIDE [Concomitant]
     Route: 048

REACTIONS (9)
  - AORTIC ANEURYSM [None]
  - MALAISE [None]
  - HEART RATE IRREGULAR [None]
  - HYPERTENSION [None]
  - PERIPHERAL VASCULAR DISORDER [None]
  - HEADACHE [None]
  - THROMBOCYTOPENIA [None]
  - HYPERLIPIDAEMIA [None]
  - CORONARY ARTERY DISEASE [None]
